FAERS Safety Report 18165124 (Version 1)
Quarter: 2020Q3

REPORT INFORMATION
  Report Type: Other
  Country: CA (occurrence: CA)
  Receive Date: 20200819
  Receipt Date: 20200819
  Transmission Date: 20201103
  Serious: Yes (Other)
  Sender: FDA-Public Use
  Company Number: CA-ACCORD-195534

PATIENT
  Sex: Male

DRUGS (7)
  1. PACLITAXEL/PACLITAXEL LIPOSOME [Suspect]
     Active Substance: PACLITAXEL
     Indication: PRODUCT USED FOR UNKNOWN INDICATION
     Dosage: DOSAGE FORM: LIQUID INTRAVENOUS, INJECTION
  2. BLEOMYCIN [Suspect]
     Active Substance: BLEOMYCIN SULFATE
     Indication: GERM CELL CANCER METASTATIC
     Dosage: BLEOMYCIN SULPHATE FOR INJECTION USP
  3. ETOPOSIDE. [Suspect]
     Active Substance: ETOPOSIDE
     Indication: GERM CELL CANCER METASTATIC
  4. IFOSFAMIDE. [Suspect]
     Active Substance: IFOSFAMIDE
     Indication: GERM CELL CANCER METASTATIC
     Dosage: IFOSFAMIDE FOR INJECTION USP, DOSAGE FORM: POWDER FOR SOLUTION INTRAVENOUS
  5. FILGRASTIM [Concomitant]
     Active Substance: FILGRASTIM
  6. CISPLATIN. [Suspect]
     Active Substance: CISPLATIN
     Indication: GERM CELL CANCER METASTATIC
     Dosage: CISPLATIN INJECTION
  7. OXALIPLATIN. [Suspect]
     Active Substance: OXALIPLATIN
     Indication: GERM CELL CANCER METASTATIC

REACTIONS (7)
  - Escherichia bacteraemia [Unknown]
  - Multiple organ dysfunction syndrome [Unknown]
  - Clostridium difficile colitis [Unknown]
  - Neutropenic colitis [Unknown]
  - Off label use [Unknown]
  - Neutropenic sepsis [Unknown]
  - Tumour lysis syndrome [Unknown]
